FAERS Safety Report 19704301 (Version 1)
Quarter: 2021Q3

REPORT INFORMATION
  Report Type: Spontaneous
  Country: US (occurrence: US)
  Receive Date: 20210815
  Receipt Date: 20210815
  Transmission Date: 20211014
  Serious: Yes (Other)
  Sender: FDA-Public Use
  Company Number: None

PATIENT
  Age: 57 Year
  Sex: Female
  Weight: 74.25 kg

DRUGS (1)
  1. ROSUVASTATIN CALCIUM 20 MG TAB [Suspect]
     Active Substance: ROSUVASTATIN CALCIUM
     Indication: BLOOD CHOLESTEROL INCREASED
     Dosage: ?          QUANTITY:1 TABLET(S);?
     Route: 048
     Dates: start: 20210808, end: 20210809

REACTIONS (5)
  - Urticaria [None]
  - Blister [None]
  - Pruritus [None]
  - Eye swelling [None]
  - Rash [None]

NARRATIVE: CASE EVENT DATE: 20210809
